FAERS Safety Report 7124536-8 (Version None)
Quarter: 2010Q4

REPORT INFORMATION
  Report Type: 
  Country: None (occurrence: None)
  Receive Date: 20101128
  Receipt Date: 20101014
  Transmission Date: 20110411
  Serious: Yes (Other)
  Sender: FDA-Public Use
  Company Number: US-AMGEN INC.-USASP2010000137

PATIENT

DRUGS (2)
  1. ENBREL [Suspect]
     Indication: PSORIASIS
     Dosage: 50 MG, UNK
     Dates: start: 20090201, end: 20101014
  2. RAPTIVA [Concomitant]
     Dosage: UNK
     Dates: start: 20101011

REACTIONS (2)
  - CELLULITIS [None]
  - CHEILITIS GRANULOMATOSA [None]
